FAERS Safety Report 4639179-5 (Version None)
Quarter: 2005Q2

REPORT INFORMATION
  Report Type: 
  Country: None (occurrence: None)
  Receive Date: 20050418
  Receipt Date: 20050331
  Transmission Date: 20051028
  Serious: Yes (Life-Threatening)
  Sender: FDA-Public Use
  Company Number: 213787

PATIENT
  Age: 52 Year
  Sex: Female
  Weight: 48 kg

DRUGS (2)
  1. HERCEPTIN [Suspect]
     Indication: BREAST CANCER METASTATIC
     Dosage: 290 MG, Q3W, INTRAVENOUS
     Route: 042
     Dates: start: 20031001, end: 20040624
  2. HERCEPTIN [Suspect]
     Indication: BREAST CANCER METASTATIC
     Dosage: 290 MG, Q3W, INTRAVENOUS
     Route: 042
     Dates: start: 20050918

REACTIONS (1)
  - HYPERTENSION [None]
